FAERS Safety Report 6901778-5 (Version None)
Quarter: 2010Q3

REPORT INFORMATION
  Report Type: 
  Country: None (occurrence: None)
  Receive Date: 20100803
  Receipt Date: 20100723
  Transmission Date: 20110219
  Serious: Yes (Hospitalization)
  Sender: FDA-Public Use
  Company Number: FR-WYE-H16481910

PATIENT
  Age: 75 Year
  Sex: Male

DRUGS (7)
  1. CORDARONE [Suspect]
     Indication: CARDIAC FAILURE
     Route: 048
     Dates: start: 20100321
  2. AMLOR [Concomitant]
  3. BUDESONIDE [Concomitant]
     Dosage: UNKNOWN
  4. PREVISCAN [Concomitant]
     Dosage: UNKNOWN
  5. FORMOTEROL FUMARATE [Concomitant]
     Dosage: UNKNOWN
  6. LASIX [Suspect]
     Indication: CARDIAC FAILURE
     Route: 048
     Dates: start: 20100321, end: 20100329
  7. ENALAPRIL [Concomitant]
     Dosage: UNKNOWN
     Dates: end: 20100330

REACTIONS (3)
  - CONDITION AGGRAVATED [None]
  - DYSPNOEA [None]
  - ERYTHEMA [None]
